FAERS Safety Report 15877774 (Version 2)
Quarter: 2019Q1

REPORT INFORMATION
  Report Type: Report from Study
  Country: CA (occurrence: CA)
  Receive Date: 20190128
  Receipt Date: 20190207
  Transmission Date: 20190417
  Serious: Yes (Other)
  Sender: FDA-Public Use
  Company Number: CA-ROCHE-1769712

PATIENT
  Age: 77 Year
  Sex: Female

DRUGS (9)
  1. DIABETA (CANADA) [Concomitant]
  2. ESBRIET [Suspect]
     Active Substance: PIRFENIDONE
     Indication: IDIOPATHIC PULMONARY FIBROSIS
     Route: 048
     Dates: start: 20160530
  3. ESBRIET [Suspect]
     Active Substance: PIRFENIDONE
     Route: 048
     Dates: start: 20160607
  4. TEMAZEPAM. [Concomitant]
     Active Substance: TEMAZEPAM
  5. SYNTHROID [Concomitant]
     Active Substance: LEVOTHYROXINE SODIUM
  6. INDOMETHACIN. [Suspect]
     Active Substance: INDOMETHACIN
     Indication: PRODUCT USED FOR UNKNOWN INDICATION
     Route: 065
     Dates: start: 201611
  7. TECTA [Concomitant]
     Active Substance: PANTOPRAZOLE MAGNESIUM
  8. ESBRIET [Suspect]
     Active Substance: PIRFENIDONE
     Route: 048
     Dates: start: 20160615
  9. ESBRIET [Suspect]
     Active Substance: PIRFENIDONE
     Route: 048
     Dates: start: 2018

REACTIONS (17)
  - Cystitis [Recovered/Resolved]
  - Dyspnoea [Recovered/Resolved]
  - Pulmonary function test abnormal [Unknown]
  - Abdominal pain upper [Not Recovered/Not Resolved]
  - Lacrimation increased [Not Recovered/Not Resolved]
  - Hypertension [Unknown]
  - Gout [Not Recovered/Not Resolved]
  - Emotional disorder [Not Recovered/Not Resolved]
  - Hyperthermia [Recovered/Resolved]
  - Dizziness [Recovered/Resolved]
  - Nausea [Not Recovered/Not Resolved]
  - Malaise [Not Recovered/Not Resolved]
  - Anaemia [Unknown]
  - Abdominal discomfort [Unknown]
  - Rhinorrhoea [Not Recovered/Not Resolved]
  - Blood glucose increased [Recovering/Resolving]
  - Sinusitis [Recovered/Resolved]

NARRATIVE: CASE EVENT DATE: 20161119
